FAERS Safety Report 7892379-3 (Version None)
Quarter: 2011Q4

REPORT INFORMATION
  Report Type: 
  Country: None (occurrence: None)
  Receive Date: 20111104
  Receipt Date: 20111025
  Transmission Date: 20120403
  Serious: Yes (Other)
  Sender: FDA-Public Use
  Company Number: US-JNJFOC-20111004997

PATIENT
  Sex: Female
  Weight: 53.07 kg

DRUGS (7)
  1. CALCIUM 500 MG + VITAMIN D [Concomitant]
     Route: 065
  2. CELEBREX [Concomitant]
     Route: 065
  3. REMICADE [Suspect]
     Indication: RHEUMATOID ARTHRITIS
     Route: 042
     Dates: start: 20090317, end: 20110930
  4. HYDROCHLOROTHIAZIDE [Concomitant]
  5. RECLAST [Concomitant]
     Route: 065
  6. ADVAIR DISKUS 100/50 [Concomitant]
     Route: 065
  7. METHOTREXATE [Suspect]
     Indication: RHEUMATOID ARTHRITIS
     Route: 048
     Dates: start: 20040122, end: 20111003

REACTIONS (1)
  - LUNG NEOPLASM MALIGNANT [None]
